FAERS Safety Report 7554925-9 (Version None)
Quarter: 2011Q2

REPORT INFORMATION
  Report Type: 
  Country: None (occurrence: None)
  Receive Date: 20110617
  Receipt Date: 20110607
  Transmission Date: 20111010
  Serious: Yes (Other)
  Sender: FDA-Public Use
  Company Number: US-ELI_LILLY_AND_COMPANY-US201106003274

PATIENT
  Sex: Female

DRUGS (2)
  1. HUMULIN 70/30 [Suspect]
     Indication: TYPE 2 DIABETES MELLITUS
     Dosage: 10 U, EACH MORNING
  2. HUMULIN 70/30 [Suspect]
     Dosage: 15 U, EACH EVENING

REACTIONS (9)
  - PROCEDURAL COMPLICATION [None]
  - EYE INJURY [None]
  - VISUAL IMPAIRMENT [None]
  - CATARACT [None]
  - MACULAR DEGENERATION [None]
  - OPTIC NERVE DISORDER [None]
  - LENS DISLOCATION [None]
  - OPTIC DISC VASCULAR DISORDER [None]
  - EYE OEDEMA [None]
